FAERS Safety Report 6263397-6 (Version None)
Quarter: 2009Q3

REPORT INFORMATION
  Report Type: 
  Country: None (occurrence: None)
  Receive Date: 20090710
  Receipt Date: 20081020
  Transmission Date: 20100115
  Serious: No
  Sender: FDA-Public Use
  Company Number: A0752799A

PATIENT
  Sex: Female

DRUGS (7)
  1. FLOVENT [Suspect]
     Indication: ASTHMA
     Dosage: 2PUFF TWICE PER DAY
     Route: 055
     Dates: start: 20030101
  2. ZYRTEC [Concomitant]
  3. SYNTHROID [Concomitant]
  4. ESTROVEN [Concomitant]
  5. DAILY VITAMIN [Concomitant]
  6. PRILOSEC [Concomitant]
  7. CALCIUM [Concomitant]

REACTIONS (3)
  - TOOTH DISORDER [None]
  - TOOTH FRACTURE [None]
  - TOOTH INJURY [None]
